FAERS Safety Report 13159734 (Version 4)
Quarter: 2017Q1

REPORT INFORMATION
  Report Type: Report from Study
  Country: US (occurrence: US)
  Receive Date: 20170127
  Receipt Date: 20170222
  Transmission Date: 20170428
  Serious: Yes (Hospitalization)
  Sender: FDA-Public Use
  Company Number: US-GILEAD-2017-0254812

PATIENT
  Age: 80 Year
  Sex: Male

DRUGS (3)
  1. IDELALISIB [Suspect]
     Active Substance: IDELALISIB
     Indication: CHRONIC LYMPHOCYTIC LEUKAEMIA
     Dosage: 150 MG, BID
     Route: 048
     Dates: start: 20161110, end: 20170113
  2. RITUXAN [Concomitant]
     Active Substance: RITUXIMAB
  3. IDELALISIB [Suspect]
     Active Substance: IDELALISIB
     Indication: IMMUNE THROMBOCYTOPENIC PURPURA
     Dosage: 150 MG, BID
     Route: 048
     Dates: start: 201701, end: 20170130

REACTIONS (4)
  - Asthenia [Unknown]
  - Pyrexia [Unknown]
  - Fall [Unknown]
  - Malaise [Unknown]

NARRATIVE: CASE EVENT DATE: 201701
